FAERS Safety Report 6264789-1 (Version None)
Quarter: 2009Q3

REPORT INFORMATION
  Report Type: 
  Country: None (occurrence: None)
  Receive Date: 20090710
  Receipt Date: 20090706
  Transmission Date: 20100115
  Serious: Yes (Life-Threatening)
  Sender: FDA-Public Use
  Company Number: AU-ASTRAZENECA-2009SE04037

PATIENT
  Age: 59 Year
  Sex: Male
  Weight: 75 kg

DRUGS (2)
  1. QUETIAPINE FUMARATE [Suspect]
     Indication: HYPOTENSION
     Route: 048
  2. ADRENALINE [Suspect]

REACTIONS (3)
  - ACCIDENTAL OVERDOSE [None]
  - HYPOTENSION [None]
  - SHOCK [None]
